FAERS Safety Report 10664318 (Version 1)
Quarter: 2014Q4

REPORT INFORMATION
  Report Type: Spontaneous
  Country: US (occurrence: None)
  Receive Date: 20141218
  Receipt Date: 20141218
  Transmission Date: 20150529
  Serious: Yes (Other)
  Sender: FDA-Public Use
  Company Number: None

PATIENT
  Age: 44 Year
  Sex: Female
  Weight: 99.5 kg

DRUGS (2)
  1. METHYLPREDNISOLONE 250 MG [Suspect]
     Active Substance: METHYLPREDNISOLONE
     Indication: MULTIPLE SCLEROSIS RELAPSE
     Dosage: DATE OF USE: 9/3 @ 2300 TO 9/4 @2100- 4 DOSES, 250 MG, Q6H, IV
     Route: 042
  2. NATALIZUMAB 300 MG [Suspect]
     Active Substance: NATALIZUMAB
     Indication: MULTIPLE SCLEROSIS
     Dosage: DATE OF USE: LAST GIVEN ONE MONTH PRIOR, 300 MG, ONE TIME, IV
     Route: 042

REACTIONS (1)
  - Hallucination, visual [None]

NARRATIVE: CASE EVENT DATE: 20140904
